FAERS Safety Report 9379440 (Version 1)
Quarter: 2013Q2

REPORT INFORMATION
  Report Type: Spontaneous
  Country: IE (occurrence: None)
  Receive Date: 20130627
  Receipt Date: 20130627
  Transmission Date: 20140414
  Serious: Yes (Death, Hospitalization, Other)
  Sender: FDA-Public Use
  Company Number: 2013P1010551

PATIENT
  Age: 52 Year
  Sex: Female

DRUGS (4)
  1. HYDROXYCHLOROQUINE [Suspect]
     Dates: start: 1995, end: 2010
  2. WARFARIN [Concomitant]
  3. PREDNISOLONE [Concomitant]
  4. BISOPROLOL [Concomitant]

REACTIONS (6)
  - Bundle branch block left [None]
  - Cardiotoxicity [None]
  - Troponin I increased [None]
  - Blood creatine phosphokinase increased [None]
  - Neurotoxicity [None]
  - Cardiomyopathy [None]
